FAERS Safety Report 4685681-X (Version None)
Quarter: 2005Q2

REPORT INFORMATION
  Report Type: 
  Country: None (occurrence: None)
  Receive Date: 20050608
  Receipt Date: 20050520
  Transmission Date: 20051028
  Serious: Yes (Other)
  Sender: FDA-Public Use
  Company Number: 2005BI006951

PATIENT
  Age: 47 Year
  Sex: Female
  Weight: 48 kg

DRUGS (3)
  1. AVONEX [Suspect]
     Indication: MULTIPLE SCLEROSIS
     Dosage: 30 UG; QW; IM
     Route: 030
     Dates: start: 20050403
  2. OMEPRAZOLE [Concomitant]
  3. NUROFEN [Concomitant]

REACTIONS (1)
  - PERIORBITAL OEDEMA [None]
